FAERS Safety Report 9626417 (Version 2)
Quarter: 2013Q4

REPORT INFORMATION
  Report Type: Report from Study
  Country: CA (occurrence: CA)
  Receive Date: 20131016
  Receipt Date: 20131016
  Transmission Date: 20140711
  Serious: Yes (Life-Threatening, Hospitalization)
  Sender: FDA-Public Use
  Company Number: CA-ROCHE-1239591

PATIENT
  Age: 63 Year
  Sex: Female
  Weight: 60 kg

DRUGS (6)
  1. ACTEMRA [Suspect]
     Indication: RHEUMATOID ARTHRITIS
     Route: 042
     Dates: start: 20110323
  2. ACTEMRA [Suspect]
     Route: 042
     Dates: start: 20130128
  3. METHOTREXATE [Concomitant]
  4. CYMBALTA [Concomitant]
  5. PREDNISONE [Concomitant]
  6. LEUCOVORIN [Concomitant]

REACTIONS (4)
  - Myocardial infarction [Unknown]
  - Malaise [Unknown]
  - Pain in extremity [Unknown]
  - Back pain [Unknown]
